FAERS Safety Report 23989866 (Version 1)
Quarter: 2024Q2

REPORT INFORMATION
  Report Type: Spontaneous
  Country: FR (occurrence: FR)
  Receive Date: 20240619
  Receipt Date: 20240619
  Transmission Date: 20240716
  Serious: Yes (Hospitalization, Other)
  Sender: FDA-Public Use
  Company Number: None

PATIENT
  Age: 80 Year
  Sex: Male

DRUGS (5)
  1. LANSOPRAZOLE [Suspect]
     Active Substance: LANSOPRAZOLE
     Indication: Oesophageal ulcer
     Dosage: 15 MG, QD
     Route: 048
     Dates: start: 20240409, end: 20240507
  2. CEFEPIME HYDROCHLORIDE [Suspect]
     Active Substance: CEFEPIME HYDROCHLORIDE
     Indication: Post procedural infection
     Dosage: 3 G, BID
     Route: 042
     Dates: start: 20240412
  3. CIPROFLOXACIN [Suspect]
     Active Substance: CIPROFLOXACIN
     Indication: Post procedural infection
     Dosage: 750 MG, BID
     Route: 042
     Dates: start: 20240420, end: 20240507
  4. RIFAMPIN [Suspect]
     Active Substance: RIFAMPIN
     Indication: Post procedural infection
     Dosage: 1200 MG, QD (600 MG 2 DAILY)
     Route: 042
     Dates: start: 20240415, end: 20240507
  5. DAPTOMYCIN [Suspect]
     Active Substance: DAPTOMYCIN
     Indication: Post procedural infection
     Dosage: 700 MG, QD
     Route: 042
     Dates: start: 20240409, end: 20240507

REACTIONS (1)
  - Eosinophilic pneumonia [Recovering/Resolving]

NARRATIVE: CASE EVENT DATE: 20240501
